FAERS Safety Report 7996637-3 (Version None)
Quarter: 2011Q4

REPORT INFORMATION
  Report Type: 
  Country: None (occurrence: None)
  Receive Date: 20111216
  Receipt Date: 20111213
  Transmission Date: 20120403
  Serious: Yes (Death)
  Sender: FDA-Public Use
  Company Number: ADR-2011-11739

PATIENT
  Age: 21 Year
  Sex: Male

DRUGS (2)
  1. BACLOFEN [Suspect]
     Indication: MUSCLE SPASTICITY
     Dosage: 127.3 MCG/DAY,INTRATH.
     Route: 037
  2. BACLOFEN [Suspect]
     Indication: SPINAL CORD INJURY
     Dosage: 127.3 MCG/DAY,INTRATH.
     Route: 037

REACTIONS (1)
  - DEATH [None]
